FAERS Safety Report 9381014 (Version 1)
Quarter: 2013Q3

REPORT INFORMATION
  Report Type: Report from Study
  Country: CN (occurrence: CN)
  Receive Date: 20130703
  Receipt Date: 20130703
  Transmission Date: 20140515
  Serious: Yes (Other)
  Sender: FDA-Public Use
  Company Number: CN-ROCHE-1243866

PATIENT
  Sex: 0

DRUGS (5)
  1. MYCOPHENOLATE MOFETIL [Suspect]
     Indication: IMMUNOSUPPRESSION
     Route: 065
  2. PREDNISONE [Suspect]
     Indication: IMMUNOSUPPRESSION
     Dosage: MAINTAINANCE DOSE 5 MG/D FOR 5 PATIENT AND 10 MG/D FOR OTHERS
     Route: 048
  3. BASILIXIMAB [Concomitant]
     Route: 065
  4. METHYLPREDNISOLONE [Concomitant]
  5. INSULIN [Concomitant]
     Indication: BLOOD GLUCOSE

REACTIONS (1)
  - Metabolic syndrome [Unknown]
